FAERS Safety Report 6861245-4 (Version None)
Quarter: 2010Q3

REPORT INFORMATION
  Report Type: 
  Country: None (occurrence: None)
  Receive Date: 20100720
  Receipt Date: 20100707
  Transmission Date: 20110219
  Serious: Yes (Hospitalization, Other)
  Sender: FDA-Public Use
  Company Number: US-ELI_LILLY_AND_COMPANY-US201007003739

PATIENT
  Sex: Male

DRUGS (9)
  1. ALIMTA [Suspect]
     Indication: NON-SMALL CELL LUNG CANCER
     Dosage: 500 MG/M2, OTHER
     Route: 042
     Dates: start: 20090722, end: 20100512
  2. ALIMTA [Suspect]
     Dosage: 500 MG/M2, OTHER
     Route: 042
     Dates: start: 20100601
  3. BEVACIZUMAB [Concomitant]
     Indication: NON-SMALL CELL LUNG CANCER
     Dosage: 15 MG/KG, OTHER
     Route: 042
     Dates: start: 20090722, end: 20100512
  4. BEVACIZUMAB [Concomitant]
     Dosage: 15 MG/KG, OTHER
     Route: 042
     Dates: start: 20100601
  5. LIPITOR [Concomitant]
     Dosage: 20 MG, DAILY (1/D)
  6. FOLIC ACID [Concomitant]
  7. OMEPRAZOLE [Concomitant]
  8. LORAZEPAM [Concomitant]
     Dosage: UNK, AS NEEDED
  9. DIAZEPAM [Concomitant]

REACTIONS (10)
  - ABDOMINAL PAIN [None]
  - CLOSTRIDIUM TEST POSITIVE [None]
  - DIVERTICULUM INTESTINAL [None]
  - HYPERLIPIDAEMIA [None]
  - HYPERTENSION [None]
  - HYPOKALAEMIA [None]
  - ILEUS [None]
  - MALIGNANT NEOPLASM PROGRESSION [None]
  - PLEURAL EFFUSION [None]
  - RETROPERITONEAL LYMPHADENOPATHY [None]
